FAERS Safety Report 15863050 (Version 1)
Quarter: 2019Q1

REPORT INFORMATION
  Report Type: Spontaneous
  Country: GB (occurrence: GB)
  Receive Date: 20190124
  Receipt Date: 20190124
  Transmission Date: 20190417
  Serious: Yes (Other)
  Sender: FDA-Public Use
  Company Number: GB-BAYER-2019-013227

PATIENT
  Age: 48 Year
  Sex: Female
  Weight: 81 kg

DRUGS (15)
  1. SELENIUM [Concomitant]
     Active Substance: SELENIUM
     Dosage: UNK
  2. FERROUS SULFATE. [Concomitant]
     Active Substance: FERROUS SULFATE
     Dosage: 2 DF, UNK
     Dates: start: 20180219
  3. HYDROXOCOBALAMIN [Concomitant]
     Active Substance: HYDROXOCOBALAMIN
     Dosage: 1 DF, UNK
     Route: 030
     Dates: start: 20180918, end: 20181211
  4. FOLIC ACID. [Concomitant]
     Active Substance: FOLIC ACID
     Dosage: 1 DF, UNK
     Dates: start: 20180219
  5. PARACETAMOL [Concomitant]
     Active Substance: ACETAMINOPHEN
     Dosage: UNK
  6. CIPROXIN 500 MG [Suspect]
     Active Substance: CIPROFLOXACIN
     Dosage: 500 MG, UNK
  7. CITALOPRAM [Concomitant]
     Active Substance: CITALOPRAM HYDROBROMIDE
     Dosage: 1 DF, UNK
     Dates: start: 20180809
  8. DOUBLEBASE [Concomitant]
     Active Substance: ISOPROPYL MYRISTATE\PARAFFIN
     Indication: DRY SKIN
     Dosage: UNK
     Dates: start: 20181016, end: 20181113
  9. MORPHINE SULFATE. [Concomitant]
     Active Substance: MORPHINE SULFATE
     Dosage: UNK
     Dates: start: 20181206
  10. LONGTEC [Concomitant]
     Active Substance: OXYCODONE HYDROCHLORIDE
     Dosage: 1 DF, UNK
     Dates: start: 20180319
  11. AMITRIPTYLINE HYDROCHLORIDE. [Concomitant]
     Active Substance: AMITRIPTYLINE HYDROCHLORIDE
     Dosage: 2 DF, UNK
     Dates: start: 20180219
  12. NITROFURANTOIN. [Concomitant]
     Active Substance: NITROFURANTOIN
     Indication: URINARY TRACT INFECTION
     Dosage: 100 MG, UNK
     Dates: start: 20181126, end: 20181129
  13. FORCEVAL JUNIOR [Concomitant]
     Dosage: 1 DF, UNK
     Dates: start: 20180219
  14. SOLIFENACIN [Concomitant]
     Active Substance: SOLIFENACIN
     Dosage: 1 DF, UNK
     Dates: start: 20180711
  15. CALCIUM CARBONATE. [Concomitant]
     Active Substance: CALCIUM CARBONATE
     Dosage: 2 DF, UNK
     Dates: start: 20180219

REACTIONS (1)
  - Stomatitis [Recovered/Resolved]

NARRATIVE: CASE EVENT DATE: 20181217
